FAERS Safety Report 9015887 (Version 3)
Quarter: 2013Q3

REPORT INFORMATION
  Report Type: Report from Study
  Country: BR (occurrence: BR)
  Receive Date: 20130116
  Receipt Date: 20130704
  Transmission Date: 20140515
  Serious: No
  Sender: FDA-Public Use
  Company Number: BR-ROCHE-1173321

PATIENT
  Sex: Female
  Weight: 68 kg

DRUGS (3)
  1. ACTEMRA [Suspect]
     Indication: RHEUMATOID ARTHRITIS
     Route: 065
     Dates: start: 20100309, end: 20120501
  2. METHOTREXATE [Suspect]
     Indication: RHEUMATOID ARTHRITIS
     Route: 048
  3. DIOVAN [Concomitant]
     Indication: HYPERTENSION

REACTIONS (2)
  - Hypersensitivity [Recovered/Resolved]
  - Spinal pain [Not Recovered/Not Resolved]
